FAERS Safety Report 7601436-8 (Version None)
Quarter: 2011Q2

REPORT INFORMATION
  Report Type: 
  Country: None (occurrence: None)
  Receive Date: 20110629
  Receipt Date: 20101228
  Transmission Date: 20111010
  Serious: Yes (Hospitalization)
  Sender: FDA-Public Use
  Company Number: WAES 1012USA04082

PATIENT
  Sex: Male

DRUGS (1)
  1. HYZAAR [Suspect]
     Indication: HYPERTENSION
     Dosage: 50-12.5 MG/DAILY/PO
     Route: 048
     Dates: start: 20000101

REACTIONS (3)
  - VOMITING [None]
  - MUSCLE SPASMS [None]
  - COUGH [None]
